FAERS Safety Report 17920431 (Version 2)
Quarter: 2020Q4

REPORT INFORMATION
  Report Type: Spontaneous
  Country: US (occurrence: US)
  Receive Date: 20200620
  Receipt Date: 20201117
  Transmission Date: 20210113
  Serious: Yes (Disabling)
  Sender: FDA-Public Use
  Company Number: US-TEVA-2020-US-1789719

PATIENT
  Age: 48 Year
  Sex: Female

DRUGS (19)
  1. GABAPENTIN. [Concomitant]
     Active Substance: GABAPENTIN
     Dates: start: 1997
  2. TAXOTERE [Suspect]
     Active Substance: DOCETAXEL
     Indication: BREAST CANCER FEMALE
     Dosage: DOSAGE: 120MG; NUMBER OF CYCLES: 08; EVERY THREE WEEKS
     Route: 065
     Dates: start: 20100330, end: 20160915
  3. AZOPT [Concomitant]
     Active Substance: BRINZOLAMIDE
     Dates: start: 1997
  4. COMBIGAN [Concomitant]
     Active Substance: BRIMONIDINE TARTRATE\TIMOLOL MALEATE
     Dates: start: 1997
  5. DOCETAXEL. [Suspect]
     Active Substance: DOCETAXEL
     Route: 065
     Dates: start: 20100330, end: 20160915
  6. LUMIGAN [Concomitant]
     Active Substance: BIMATOPROST
     Dates: start: 1997
  7. DOCETAXEL. [Suspect]
     Active Substance: DOCETAXEL
     Dosage: INJECTION CONCENTRATE
     Route: 065
     Dates: start: 20100330, end: 20160915
  8. ANASTROZOLE. [Concomitant]
     Active Substance: ANASTROZOLE
     Dates: start: 200910
  9. LOSARTAN POTASSIUM. [Concomitant]
     Active Substance: LOSARTAN POTASSIUM
     Dates: start: 1997
  10. GLIMEPIRIDE. [Concomitant]
     Active Substance: GLIMEPIRIDE
     Dates: start: 1997
  11. KLOR-CON [Concomitant]
     Active Substance: POTASSIUM CHLORIDE
     Dates: start: 1997
  12. ATORVASTATIN [Concomitant]
     Active Substance: ATORVASTATIN
     Dates: start: 1997
  13. CYTOXAN [Concomitant]
     Active Substance: CYCLOPHOSPHAMIDE
     Indication: BREAST CANCER FEMALE
     Dosage: DOSAGE: UNKNOWN; NUMBER OF CYCLES: 08; EVERY THREE WEEKS
     Dates: start: 20100330, end: 20160915
  14. DOCETAXEL. [Suspect]
     Active Substance: DOCETAXEL
     Indication: BREAST CANCER FEMALE
     Dosage: DOSAGE: 120MG; NUMBER OF CYCLES: 08; EVERY THREE WEEKS
     Route: 065
     Dates: start: 20100330, end: 20160915
  15. CLONIDINE. [Concomitant]
     Active Substance: CLONIDINE
     Dates: start: 1997
  16. LETROZOLE. [Concomitant]
     Active Substance: LETROZOLE
     Dates: start: 1997
  17. OMEPRAZOLE. [Concomitant]
     Active Substance: OMEPRAZOLE
     Dates: start: 1997
  18. FUROSEMIDE. [Concomitant]
     Active Substance: FUROSEMIDE
     Dates: start: 1997
  19. ADRIAMYCIN [Concomitant]
     Active Substance: DOXORUBICIN HYDROCHLORIDE
     Indication: BREAST CANCER FEMALE
     Dosage: DOSAGE: UNKNOWN; NUMBER OF CYCLES: 08; EVERY THREE WEEKS
     Dates: start: 20100330, end: 20160915

REACTIONS (4)
  - Alopecia areata [Not Recovered/Not Resolved]
  - Madarosis [Not Recovered/Not Resolved]
  - Hair texture abnormal [Not Recovered/Not Resolved]
  - Hair colour changes [Not Recovered/Not Resolved]

NARRATIVE: CASE EVENT DATE: 201003
